FAERS Safety Report 11947715 (Version 2)
Quarter: 2016Q4

REPORT INFORMATION
  Report Type: Spontaneous
  Country: DK (occurrence: DK)
  Receive Date: 20160125
  Receipt Date: 20161128
  Transmission Date: 20170206
  Serious: Yes (Life-Threatening)
  Sender: FDA-Public Use
  Company Number: DK-JNJFOC-20160114721

PATIENT
  Age: 43 Year
  Sex: Female
  Weight: 59 kg

DRUGS (4)
  1. REMSIMA [Suspect]
     Active Substance: INFLIXIMAB
     Indication: CROHN^S DISEASE
     Dosage: 4 TIMES IN 20
     Route: 042
     Dates: start: 201505, end: 20151118
  2. MERCAPTOPURINE. [Concomitant]
     Active Substance: MERCAPTOPURINE
     Route: 065
     Dates: start: 2006, end: 2009
  3. REMICADE [Suspect]
     Active Substance: INFLIXIMAB
     Indication: CROHN^S DISEASE
     Route: 042
     Dates: start: 20070615, end: 201505
  4. REMICADE [Suspect]
     Active Substance: INFLIXIMAB
     Indication: CROHN^S DISEASE
     Route: 042
     Dates: end: 20151118

REACTIONS (2)
  - Lymphadenopathy [Recovered/Resolved]
  - Hodgkin^s disease [Recovered/Resolved]

NARRATIVE: CASE EVENT DATE: 20151214
